FAERS Safety Report 10177951 (Version 1)
Quarter: 2014Q2

REPORT INFORMATION
  Report Type: Spontaneous
  Country: AR (occurrence: AR)
  Receive Date: 20140516
  Receipt Date: 20140516
  Transmission Date: 20141212
  Serious: Yes (Hospitalization)
  Sender: FDA-Public Use
  Company Number: AR-ABBVIE-14P-007-1235974-00

PATIENT
  Sex: Female

DRUGS (4)
  1. HUMIRA [Suspect]
     Indication: CROHN^S DISEASE
     Dates: start: 201311, end: 201404
  2. HUMIRA [Suspect]
     Indication: INTESTINAL FISTULA
  3. MESALAZINE [Concomitant]
     Indication: CROHN^S DISEASE
     Dates: start: 201311, end: 201405
  4. MESALAZINE [Concomitant]
     Indication: INTESTINAL FISTULA

REACTIONS (3)
  - Purpura [Not Recovered/Not Resolved]
  - Vasculitis [Not Recovered/Not Resolved]
  - Erythema multiforme [Unknown]
